FAERS Safety Report 13463560 (Version 2)
Quarter: 2017Q2

REPORT INFORMATION
  Report Type: Report from Study
  Country: CA (occurrence: CA)
  Receive Date: 20170420
  Receipt Date: 20170521
  Transmission Date: 20170830
  Serious: Yes (Death, Hospitalization)
  Sender: FDA-Public Use
  Company Number: CA-HLSUS-2017-CA-000401

PATIENT
  Age: 72 Year
  Sex: Female
  Weight: 45.3 kg

DRUGS (6)
  1. CLOZARIL [Suspect]
     Active Substance: CLOZAPINE
     Indication: SCHIZOPHRENIA
     Dosage: 75 MG BID
     Route: 048
     Dates: start: 20150519
  2. SENOKOT [Concomitant]
     Active Substance: SENNOSIDES
     Indication: CONSTIPATION
     Dosage: 17.2 MG BID
     Dates: start: 20150930
  3. LACTULOSE. [Concomitant]
     Active Substance: LACTULOSE
     Indication: CONSTIPATION
     Dosage: 30 ML TID
     Route: 048
     Dates: start: 20160812
  4. LAX-A-DAY [Concomitant]
     Indication: CONSTIPATION
     Dosage: 17 G BID
     Route: 048
     Dates: start: 20151112
  5. MICROLAX [Concomitant]
     Indication: CONSTIPATION
     Dosage: PRN
     Route: 048
     Dates: start: 20160826
  6. D-TABS [Concomitant]
     Active Substance: CHOLECALCIFEROL
     Indication: OSTEOPOROSIS
     Route: 048
     Dates: start: 20150930

REACTIONS (4)
  - Neutrophil count increased [Not Recovered/Not Resolved]
  - Ileus paralytic [Fatal]
  - Aspiration [Fatal]
  - Haemoglobin decreased [Unknown]

NARRATIVE: CASE EVENT DATE: 20160926
